FAERS Safety Report 18922715 (Version 1)
Quarter: 2021Q1

REPORT INFORMATION
  Report Type: Spontaneous
  Country: US (occurrence: US)
  Receive Date: 20210222
  Receipt Date: 20210222
  Transmission Date: 20210420
  Serious: Yes (Death)
  Sender: FDA-Public Use
  Company Number: None

PATIENT
  Age: 79 Year
  Sex: Male
  Weight: 105 kg

DRUGS (1)
  1. CASIRIVIMAB/IMDEVIMAB [Suspect]
     Active Substance: CASIRIVIMAB\IMDEVIMAB
     Dosage: ?          OTHER FREQUENCY:ONCE;?
     Route: 040
     Dates: start: 20210218, end: 20210218

REACTIONS (11)
  - Epistaxis [None]
  - Sepsis [None]
  - Tachycardia [None]
  - Cerebrovascular accident [None]
  - Moaning [None]
  - Vomiting [None]
  - Hypotension [None]
  - Bradycardia [None]
  - Pulse absent [None]
  - Occult blood positive [None]
  - Chills [None]

NARRATIVE: CASE EVENT DATE: 20210218
